FAERS Safety Report 16645501 (Version 1)
Quarter: 2019Q3

REPORT INFORMATION
  Report Type: Report from Study
  Country: US (occurrence: US)
  Receive Date: 20190730
  Receipt Date: 20190730
  Transmission Date: 20191004
  Serious: Yes (Hospitalization, Other)
  Sender: FDA-Public Use
  Company Number: US-AMGEN-USASL2019097584

PATIENT
  Age: 52 Year
  Sex: Male
  Weight: 92 kg

DRUGS (7)
  1. DIPHENHYDRAMINE. [Concomitant]
     Active Substance: DIPHENHYDRAMINE
     Dosage: 25 MILLIGRAM
     Route: 048
  2. ENBREL [Suspect]
     Active Substance: ETANERCEPT
     Indication: RHEUMATOID ARTHRITIS
     Dosage: 50 MILLIGRAM, QWK
     Route: 065
  3. VANCOMYCIN [Concomitant]
     Active Substance: VANCOMYCIN
     Dosage: 400 MILLILITER
  4. DICLOFENAC [Concomitant]
     Active Substance: DICLOFENAC
     Indication: RHEUMATOID ARTHRITIS
     Dosage: 75 MILLIGRAM, BID
  5. BENADRYL [Concomitant]
     Active Substance: DIPHENHYDRAMINE HYDROCHLORIDE
  6. VANCOMYCIN [Concomitant]
     Active Substance: VANCOMYCIN
     Dosage: 200 MILLILITER
  7. PREDNISONE. [Concomitant]
     Active Substance: PREDNISONE
     Indication: RHEUMATOID ARTHRITIS
     Dosage: 15MILLIGRAM/30MILLIGRAM QD

REACTIONS (9)
  - Haemoglobin decreased [Unknown]
  - Cellulitis [Unknown]
  - Immunodeficiency [Unknown]
  - Sepsis [Unknown]
  - Bursitis [Recovered/Resolved]
  - Red blood cell count decreased [Unknown]
  - Rheumatoid arthritis [Unknown]
  - Blood bilirubin increased [Unknown]
  - Dry skin [Unknown]

NARRATIVE: CASE EVENT DATE: 201904
